FAERS Safety Report 7859628-9 (Version None)
Quarter: 2011Q4

REPORT INFORMATION
  Report Type: 
  Country: None (occurrence: None)
  Receive Date: 20111027
  Receipt Date: 20111020
  Transmission Date: 20120403
  Serious: Yes (Other)
  Sender: FDA-Public Use
  Company Number: US-AMGEN-USASP2011021390

PATIENT
  Sex: Male

DRUGS (1)
  1. ENBREL [Suspect]
     Indication: RHEUMATOID ARTHRITIS
     Dosage: 50 MG, QWK
     Dates: start: 20110129

REACTIONS (8)
  - DEPRESSION [None]
  - WEIGHT INCREASED [None]
  - RHEUMATOID ARTHRITIS [None]
  - VOMITING [None]
  - NAUSEA [None]
  - DECREASED ACTIVITY [None]
  - ABDOMINAL DISCOMFORT [None]
  - INJECTION SITE PAIN [None]
